FAERS Safety Report 9633155 (Version 3)
Quarter: 2013Q4

REPORT INFORMATION
  Report Type: Spontaneous
  Country: FR (occurrence: FR)
  Receive Date: 20131020
  Receipt Date: 20131210
  Transmission Date: 20140711
  Serious: Yes (Other)
  Sender: FDA-Public Use
  Company Number: FR-JNJFOC-20131008621

PATIENT
  Age: 58 Year
  Sex: Male
  Weight: 70 kg

DRUGS (3)
  1. NICORETTE SPRAY [Suspect]
     Indication: SMOKING CESSATION THERAPY
     Route: 002
  2. NICORETTE SPRAY [Suspect]
     Indication: SMOKING CESSATION THERAPY
     Route: 002
     Dates: start: 20130926, end: 20130926
  3. NIQUITIN MINI [Concomitant]
     Indication: SMOKING CESSATION THERAPY
     Route: 002

REACTIONS (8)
  - Loss of consciousness [Recovered/Resolved]
  - Fall [Recovered/Resolved]
  - Oral discomfort [Recovered/Resolved]
  - Cough [Recovered/Resolved]
  - Vertigo [Recovered/Resolved]
  - Lacrimation increased [Recovered/Resolved]
  - Dyspnoea [Recovered/Resolved]
  - Nausea [Recovered/Resolved]
